FAERS Safety Report 22098179 (Version 3)
Quarter: 2023Q1

REPORT INFORMATION
  Report Type: Spontaneous
  Country: CZ (occurrence: CZ)
  Receive Date: 20230315
  Receipt Date: 20230328
  Transmission Date: 20230417
  Serious: Yes (Death, Hospitalization, Other)
  Sender: FDA-Public Use
  Company Number: CZ-Orion Corporation ORION PHARMA-MARE2023-0080

PATIENT
  Age: 50 Year
  Sex: Female

DRUGS (3)
  1. TACROLIMUS [Suspect]
     Active Substance: TACROLIMUS
     Indication: Immunosuppression
     Dosage: UNK UNK, UNKNOWN FREQ.(IMMUNOSUPPRESSIVE THERAPY WAS STOPPED)
     Route: 065
  2. MYCOPHENOLIC ACID [Concomitant]
     Active Substance: MYCOPHENOLIC ACID
     Indication: Immunosuppression
     Dosage: UNK UNK, UNKNOWN FREQ.(IMMUNOSUPPRESSIVE THERAPY WAS STOPPED)
     Route: 065
  3. PREDNISONE [Concomitant]
     Active Substance: PREDNISONE
     Indication: Immunosuppression
     Dosage: UNK UNK, UNKNOWN FREQ.(IMMUNOSUPPRESSIVE THERAPY WAS STOPPED)
     Route: 065

REACTIONS (2)
  - Sepsis [Fatal]
  - Pneumonia [Recovering/Resolving]
